FAERS Safety Report 6705890-5 (Version None)
Quarter: 2010Q2

REPORT INFORMATION
  Report Type: 
  Country: None (occurrence: None)
  Receive Date: 20100503
  Receipt Date: 20100216
  Transmission Date: 20101027
  Serious: No
  Sender: FDA-Public Use
  Company Number: US-ASTRAZENECA-2010SE02351

PATIENT
  Age: 83 Year
  Sex: Male
  Weight: 65.8 kg

DRUGS (7)
  1. NEXIUM [Suspect]
     Indication: GASTROOESOPHAGEAL REFLUX DISEASE
     Route: 048
     Dates: start: 20040101
  2. ASPIRIN [Concomitant]
     Dosage: 1/2 TABLET DAILY
     Route: 048
  3. DETROL [Concomitant]
     Route: 048
  4. HYDROCHLOROTHIAZIDE [Concomitant]
     Route: 048
  5. POTASSIUM [Concomitant]
     Dosage: 1 TSP DAILY
     Route: 048
  6. LIVOTHYROXIN [Concomitant]
     Route: 048
  7. FLOMAX [Concomitant]
     Route: 055

REACTIONS (1)
  - BONE DENSITY DECREASED [None]
